FAERS Safety Report 4634004-0 (Version None)
Quarter: 2005Q2

REPORT INFORMATION
  Report Type: 
  Country: None (occurrence: None)
  Receive Date: 20050407
  Receipt Date: 20050322
  Transmission Date: 20051028
  Serious: Yes (Death)
  Sender: FDA-Public Use
  Company Number: US124344

PATIENT

DRUGS (3)
  1. ENBREL [Suspect]
     Dosage: MG, 2 IN 1 WEEKS, SC
     Route: 058
  2. OXYGEN (OXYGEN) [Concomitant]
  3. CORTICOSTEROID NOS (CORTICOSTEROID NOS) [Concomitant]

REACTIONS (5)
  - DISEASE PROGRESSION [None]
  - LUNG DISORDER [None]
  - MULTI-ORGAN DISORDER [None]
  - ORGAN FAILURE [None]
  - RESPIRATORY DISORDER [None]
